FAERS Safety Report 4587289-3 (Version None)
Quarter: 2005Q1

REPORT INFORMATION
  Report Type: 
  Country: None (occurrence: None)
  Receive Date: 20050215
  Receipt Date: 20050203
  Transmission Date: 20050727
  Serious: Yes (Hospitalization)
  Sender: FDA-Public Use
  Company Number: 2005AP00369

PATIENT
  Age: 54 Year
  Sex: Male
  Weight: 67 kg

DRUGS (6)
  1. ZESTRIL [Suspect]
     Indication: HYPERTENSION
     Dosage: 10 MG DAILY PO
     Route: 048
     Dates: start: 20021010, end: 20050114
  2. SIGMART [Concomitant]
  3. MEVALOTIN [Concomitant]
  4. WARFARIN SODIUM [Concomitant]
  5. BUFFERIN [Concomitant]
  6. EVIPROSTAT [Concomitant]

REACTIONS (7)
  - CHEST PAIN [None]
  - LARYNGEAL DISORDER [None]
  - LARYNGEAL OEDEMA [None]
  - LARYNGOPHARYNGITIS [None]
  - MUCOSAL EROSION [None]
  - NASOPHARYNGITIS [None]
  - UPPER RESPIRATORY TRACT INFECTION [None]
